FAERS Safety Report 7879254-5 (Version None)
Quarter: 2011Q4

REPORT INFORMATION
  Report Type: 
  Country: None (occurrence: None)
  Receive Date: 20111101
  Receipt Date: 20111025
  Transmission Date: 20120403
  Serious: Yes (Hospitalization, Other)
  Sender: FDA-Public Use
  Company Number: US-NAPPMUNDI-USA-2011-0070869

PATIENT
  Sex: Female

DRUGS (1)
  1. OXYCONTIN [Suspect]
     Indication: PRODUCT USED FOR UNKNOWN INDICATION
     Dosage: 40 MG, BID

REACTIONS (13)
  - HOSPITALISATION [None]
  - WEIGHT INCREASED [None]
  - MALAISE [None]
  - JOINT INJURY [None]
  - ABDOMINAL DISTENSION [None]
  - DYSPNOEA [None]
  - MYOCARDIAL INFARCTION [None]
  - HAEMOPTYSIS [None]
  - THROMBOSIS [None]
  - EPILEPSY [None]
  - HYPOTENSION [None]
  - FALL [None]
  - DEPRESSION [None]
